FAERS Safety Report 9185268 (Version 2)
Quarter: 2013Q2

REPORT INFORMATION
  Report Type: Spontaneous
  Country: US (occurrence: None)
  Receive Date: 20130321
  Receipt Date: 20130424
  Transmission Date: 20140414
  Serious: Yes (Death, Hospitalization, Other)
  Sender: FDA-Public Use
  Company Number: UTC-029413

PATIENT
  Age: 63 Year
  Sex: Female
  Weight: 63.63 kg

DRUGS (2)
  1. REMODULIN (2.5 MILLIGRAM/MILLILITERS, INJECTION FOR INFUSION) (TREPROSTINIL SODIUM) [Suspect]
     Indication: PULMONARY ARTERIAL HYPERTENSION
     Dosage: 106.56 UG/KG (0.074 UG/KG, 1 IN 1 MIN), INTRAVENOUS DRIP
     Route: 041
     Dates: start: 20100409
  2. COUMADIN (WARFARIN SODIUM) [Concomitant]

REACTIONS (3)
  - Chest pain [None]
  - Pulmonary mass [None]
  - Lung neoplasm malignant [None]
